FAERS Safety Report 7452414-3 (Version None)
Quarter: 2011Q2

REPORT INFORMATION
  Report Type: 
  Country: None (occurrence: None)
  Receive Date: 20110502
  Receipt Date: 20101004
  Transmission Date: 20111010
  Serious: No
  Sender: FDA-Public Use
  Company Number: US-ASTRAZENECA-2010SE47027

PATIENT
  Age: 53 Year
  Sex: Female
  Weight: 56.7 kg

DRUGS (2)
  1. NEXIUM [Suspect]
     Route: 048
     Dates: start: 20100901
  2. NEXIUM [Suspect]
     Indication: DYSPEPSIA
     Route: 048

REACTIONS (4)
  - DYSPEPSIA [None]
  - DRUG DOSE OMISSION [None]
  - INCREASED APPETITE [None]
  - ASTHENIA [None]
